FAERS Safety Report 5042602-8 (Version None)
Quarter: 2006Q3

REPORT INFORMATION
  Report Type: 
  Country: None (occurrence: None)
  Receive Date: 20060705
  Receipt Date: 20060313
  Transmission Date: 20061208
  Serious: Yes (Other)
  Sender: FDA-Public Use
  Company Number: PHHO2006AU04210

PATIENT
  Sex: Male
  Weight: 92 kg

DRUGS (7)
  1. PREDNISOLONE [Concomitant]
     Indication: MULTIPLE MYELOMA
     Dosage: 50 MG, Q48H
     Route: 048
     Dates: start: 20050603, end: 20050701
  2. PREDNISOLONE [Concomitant]
     Dosage: NO TREATMENT
  3. THALIDOMIDE [Concomitant]
     Indication: MULTIPLE MYELOMA
     Dosage: 100 MG, QD
     Route: 048
     Dates: start: 20050529, end: 20050701
  4. THALIDOMIDE [Concomitant]
     Dosage: NO TREATMENT
  5. CALTRATE [Concomitant]
     Dosage: 600 MG, TID
  6. SERTRALINE [Concomitant]
     Indication: DEPRESSION
     Dosage: UNK, UNK
  7. ZOLEDRONIC ACID [Suspect]
     Indication: MULTIPLE MYELOMA
     Dosage: 4 MG, QMO
     Route: 042
     Dates: start: 20030101

REACTIONS (5)
  - DRUG HYPERSENSITIVITY [None]
  - IMPAIRED HEALING [None]
  - OSTEONECROSIS [None]
  - TOOTH DISORDER [None]
  - TOOTH EXTRACTION [None]
